FAERS Safety Report 8347351-6 (Version None)
Quarter: 2012Q2

REPORT INFORMATION
  Report Type: 
  Country: None (occurrence: None)
  Receive Date: 20120509
  Receipt Date: 20120504
  Transmission Date: 20120825
  Serious: Yes (Other)
  Sender: FDA-Public Use
  Company Number: US-PFIZER INC-2012057063

PATIENT
  Sex: Female

DRUGS (2)
  1. CHANTIX [Suspect]
     Dosage: 0.5MG-1MG, UNK
  2. XANAX [Concomitant]
     Dosage: 0.5 MG, AS NEEDED

REACTIONS (2)
  - ANXIETY [None]
  - DEPRESSION [None]
